FAERS Safety Report 9182042 (Version 1)
Quarter: 2013Q1

REPORT INFORMATION
  Report Type: Spontaneous
  Country: US (occurrence: None)
  Receive Date: 20120625
  Receipt Date: 20120625
  Transmission Date: 20140127
  Serious: No
  Sender: FDA-Public Use
  Company Number: FK201200497

PATIENT
  Age: 20 Year
  Sex: Male

DRUGS (1)
  1. SENSORCAINE-MPF WITH EPINEPHRINE [Suspect]
     Indication: ANAESTHESIA
     Dosage: 7.5 MG IN 1 ML FILE # (M-470828)

REACTIONS (1)
  - Drug ineffective [None]
